FAERS Safety Report 19083720 (Version 2)
Quarter: 2021Q2

REPORT INFORMATION
  Report Type: Report from Study
  Country: RU (occurrence: RU)
  Receive Date: 20210401
  Receipt Date: 20210416
  Transmission Date: 20210717
  Serious: Yes (Hospitalization, Other)
  Sender: FDA-Public Use
  Company Number: RU-INCYTE CORPORATION-2020IN013562

PATIENT

DRUGS (6)
  1. JAKAVI [Suspect]
     Active Substance: RUXOLITINIB
     Indication: PRIMARY MYELOFIBROSIS
     Dosage: 15 MG, BID
     Route: 048
     Dates: start: 20200117
  2. HYDREA [Concomitant]
     Active Substance: HYDROXYUREA
     Indication: PRODUCT USED FOR UNKNOWN INDICATION
     Dosage: 2 DF (PER DAY)
     Route: 065
     Dates: start: 201601
  3. HYDREA [Concomitant]
     Active Substance: HYDROXYUREA
     Dosage: 1000 MG (PER DAY)
     Route: 065
  4. HYDREA [Concomitant]
     Active Substance: HYDROXYUREA
     Dosage: 1,000?1500 G/DAY)
     Route: 065
     Dates: end: 2019
  5. HYDREA [Concomitant]
     Active Substance: HYDROXYUREA
     Dosage: 1500 MG (PER DAY)
     Route: 065
  6. JAKAVI [Suspect]
     Active Substance: RUXOLITINIB
     Dosage: 30 MG (PER DAY)
     Route: 048

REACTIONS (5)
  - Philadelphia positive chronic myeloid leukaemia [Unknown]
  - COVID-19 [Unknown]
  - Pneumonia [Unknown]
  - Haemoglobin decreased [Unknown]
  - Blood lactate dehydrogenase increased [Unknown]

NARRATIVE: CASE EVENT DATE: 20200416
